FAERS Safety Report 18198857 (Version 2)
Quarter: 2020Q3

REPORT INFORMATION
  Report Type: Spontaneous
  Country: JP (occurrence: JP)
  Receive Date: 20200826
  Receipt Date: 20200915
  Transmission Date: 20201103
  Serious: Yes (Hospitalization)
  Sender: FDA-Public Use
  Company Number: JP-PFIZER INC-2020326988

PATIENT
  Age: 57 Year
  Sex: Female
  Weight: 40 kg

DRUGS (10)
  1. ZOSYN [Suspect]
     Active Substance: PIPERACILLIN SODIUM\TAZOBACTAM SODIUM
     Indication: LARGE INTESTINE PERFORATION
     Dosage: 4.5 G, FOUR TIMES DAILY
     Route: 041
     Dates: start: 20200423, end: 20200502
  2. ZOSYN [Suspect]
     Active Substance: PIPERACILLIN SODIUM\TAZOBACTAM SODIUM
     Indication: SEPTIC SHOCK
  3. QUETIAPINE. [Concomitant]
     Active Substance: QUETIAPINE
     Dosage: UNK
     Route: 065
  4. CALONAL [Concomitant]
     Active Substance: ACETAMINOPHEN
     Dosage: UNK, AS NEEDED
     Route: 065
  5. TRAZODONE HYDROCHLORIDE. [Concomitant]
     Active Substance: TRAZODONE HYDROCHLORIDE
     Dosage: UNK, AS NEEDED
     Route: 065
     Dates: start: 20200421
  6. CEFEPIME [Suspect]
     Active Substance: CEFEPIME HYDROCHLORIDE
     Dosage: 0.5 G, TWICE DAILY
     Route: 041
     Dates: start: 20200503, end: 20200604
  7. MEROPENEM 0.5G PFIZER [Suspect]
     Active Substance: MEROPENEM
     Indication: SEPTIC SHOCK
  8. SERENACE [Concomitant]
     Active Substance: HALOPERIDOL
     Dosage: UNK
     Route: 065
     Dates: start: 20200421
  9. MEROPENEM 0.5G PFIZER [Suspect]
     Active Substance: MEROPENEM
     Indication: LARGE INTESTINE PERFORATION
     Dosage: 1 G, THRICE DAILY
     Route: 041
     Dates: start: 20200502, end: 20200503
  10. BELSOMRA [Concomitant]
     Active Substance: SUVOREXANT
     Dosage: UNK
     Route: 065
     Dates: start: 20200421

REACTIONS (1)
  - Renal impairment [Recovering/Resolving]

NARRATIVE: CASE EVENT DATE: 20200503
